FAERS Safety Report 8530941-5 (Version None)
Quarter: 2012Q3

REPORT INFORMATION
  Report Type: 
  Country: None (occurrence: None)
  Receive Date: 20120710
  Receipt Date: 20120628
  Transmission Date: 20120928
  Serious: Yes (Other)
  Sender: FDA-Public Use
  Company Number: ADR-2012-01235

PATIENT
  Sex: Male

DRUGS (3)
  1. BACLOFEN [Suspect]
     Indication: MUSCLE SPASTICITY
  2. BACLOFEN [Suspect]
     Indication: HEAD INJURY
  3. BACLOFEN [Suspect]
     Indication: BRAIN INJURY

REACTIONS (5)
  - PRURITUS [None]
  - HYPERHIDROSIS [None]
  - ERECTION INCREASED [None]
  - NO THERAPEUTIC RESPONSE [None]
  - MUSCLE SPASMS [None]
